FAERS Safety Report 16648171 (Version 1)
Quarter: 2019Q3

REPORT INFORMATION
  Report Type: Spontaneous
  Country: JP (occurrence: JP)
  Receive Date: 20190730
  Receipt Date: 20190730
  Transmission Date: 20191004
  Serious: Yes (Other)
  Sender: FDA-Public Use
  Company Number: PHHY2019JP174446

PATIENT
  Age: 41 Year
  Sex: Female

DRUGS (3)
  1. GAMMA GLOBULIN [Concomitant]
     Active Substance: IMMUNE GLOBULIN NOS
     Indication: POLYMYOSITIS
     Route: 065
  2. AZATHIOPRINE. [Concomitant]
     Active Substance: AZATHIOPRINE
     Indication: POLYMYOSITIS
     Route: 065
  3. PREDNISOLONE. [Suspect]
     Active Substance: PREDNISOLONE
     Indication: POLYMYOSITIS
     Route: 065

REACTIONS (4)
  - Cataract [Unknown]
  - Spinal compression fracture [Unknown]
  - Osteoporosis [Unknown]
  - Therapeutic response decreased [Unknown]
